FAERS Safety Report 17065138 (Version 1)
Quarter: 2019Q4

REPORT INFORMATION
  Report Type: Spontaneous
  Country: US (occurrence: US)
  Receive Date: 20191122
  Receipt Date: 20191122
  Transmission Date: 20200122
  Serious: No
  Sender: FDA-Public Use
  Company Number: US-AMGEN-USASP2019192761

PATIENT
  Sex: Male

DRUGS (1)
  1. REPATHA [Suspect]
     Active Substance: EVOLOCUMAB
     Indication: BLOOD CHOLESTEROL ABNORMAL
     Dosage: UNK UNK, UNK
     Route: 065
     Dates: start: 201902

REACTIONS (3)
  - Pain of skin [Unknown]
  - Alopecia [Unknown]
  - Dandruff [Unknown]

NARRATIVE: CASE EVENT DATE: 2019
